FAERS Safety Report 5300444-X (Version None)
Quarter: 2007Q2

REPORT INFORMATION
  Report Type: 
  Country: None (occurrence: None)
  Receive Date: 20070413
  Receipt Date: 20070413
  Transmission Date: 20071010
  Serious: Yes (Other)
  Sender: FDA-Public Use
  Company Number: None

PATIENT
  Age: 40 Year
  Sex: Male
  Weight: 45.3597 kg

DRUGS (2)
  1. TYLENOL (CAPLET) [Suspect]
     Indication: GINGIVAL PAIN
     Dosage: 2 TABLESPOONS ONCE ORAL
     Route: 048
     Dates: start: 20070301
  2. TYLENOL (CAPLET) [Suspect]
     Indication: ORAL PAIN
     Dosage: 2 TABLESPOONS ONCE ORAL
     Route: 048
     Dates: start: 20070301

REACTIONS (1)
  - SLEEP WALKING [None]
